FAERS Safety Report 10665796 (Version 1)
Quarter: 2014Q4

REPORT INFORMATION
  Report Type: Spontaneous
  Country: FR (occurrence: FR)
  Receive Date: 20141219
  Receipt Date: 20141219
  Transmission Date: 20150529
  Serious: Yes (Disabling)
  Sender: FDA-Public Use
  Company Number: FR-BRISTOL-MYERS SQUIBB COMPANY-BMS-2014-000920

PATIENT
  Age: 67 Year
  Sex: Male

DRUGS (12)
  1. NULOJIX [Suspect]
     Active Substance: BELATACEPT
     Indication: PRODUCT USED FOR UNKNOWN INDICATION
     Dosage: UNK, Q2WK
     Route: 042
     Dates: start: 201408
  2. VITAMIN B1 W/VITAMIN B6 [Concomitant]
     Active Substance: PYRIDOXINE HYDROCHLORIDE\THIAMINE HYDROCHLORIDE
  3. EUPRESSYL                          /00631801/ [Concomitant]
     Active Substance: URAPIDIL
  4. LESCOL [Concomitant]
     Active Substance: FLUVASTATIN SODIUM
  5. UVEDOSE [Concomitant]
     Active Substance: CHOLECALCIFEROL
  6. CELLCEPT [Concomitant]
     Active Substance: MYCOPHENOLATE MOFETIL\MYCOPHENOLATE MOFETIL HYDROCHLORIDE
  7. CORTANCYL [Concomitant]
     Active Substance: PREDNISONE
  8. KARDEGIC [Concomitant]
     Active Substance: ASPIRIN LYSINE
  9. LASILIX                            /00032601/ [Concomitant]
     Active Substance: FUROSEMIDE
  10. TEMERIT [Concomitant]
     Active Substance: NEBIVOLOL
  11. DIFFU K [Concomitant]
     Active Substance: POTASSIUM CHLORIDE
  12. ESIDREX [Concomitant]
     Active Substance: HYDROCHLOROTHIAZIDE

REACTIONS (1)
  - Arthralgia [Recovering/Resolving]

NARRATIVE: CASE EVENT DATE: 201410
